FAERS Safety Report 6098634-4 (Version None)
Quarter: 2009Q1

REPORT INFORMATION
  Report Type: 
  Country: None (occurrence: None)
  Receive Date: 20090302
  Receipt Date: 20090226
  Transmission Date: 20090719
  Serious: Yes (Hospitalization)
  Sender: FDA-Public Use
  Company Number: ES-BRISTOL-MYERS SQUIBB COMPANY-14522387

PATIENT
  Age: 44 Year
  Sex: Male

DRUGS (1)
  1. TRIGON-DEPOT-INJ [Suspect]
     Indication: SINUSITIS
     Dosage: 1 AMPOLA 1 ML
     Route: 030
     Dates: start: 20080922, end: 20080922

REACTIONS (1)
  - ADRENAL HAEMORRHAGE [None]
